FAERS Safety Report 18514212 (Version 3)
Quarter: 2022Q2

REPORT INFORMATION
  Report Type: Other
  Country: CA (occurrence: CA)
  Receive Date: 20201117
  Receipt Date: 20220626
  Transmission Date: 20220721
  Serious: Yes (Hospitalization, Other)
  Sender: FDA-Public Use
  Company Number: CA-CELLTRION INC.-2020CA031274

PATIENT

DRUGS (25)
  1. RITUXIMAB [Suspect]
     Active Substance: RITUXIMAB
     Indication: Rheumatoid arthritis
     Dosage: 1000.0 MILLIGRAM
     Route: 042
  2. ACTEMRA [Suspect]
     Active Substance: TOCILIZUMAB
     Indication: Rheumatoid arthritis
     Dosage: 300.0 MILLIGRAM
     Route: 042
  3. ACTEMRA [Suspect]
     Active Substance: TOCILIZUMAB
     Indication: Rheumatoid arthritis
     Dosage: 600 MILLIGRAM, 1 EVERY 1 MONTHS
     Route: 042
  4. ACTEMRA [Suspect]
     Active Substance: TOCILIZUMAB
     Indication: Rheumatoid arthritis
     Dosage: 162 MILLIGRAM, 1 EVERY 1 WEEKS
     Route: 058
  5. SIMPONI [Suspect]
     Active Substance: GOLIMUMAB
     Indication: Rheumatoid arthritis
     Dosage: UNK
     Route: 065
  6. SIMPONI [Suspect]
     Active Substance: GOLIMUMAB
     Indication: Rheumatoid arthritis
     Dosage: UNK
     Route: 065
  7. XELJANZ [Suspect]
     Active Substance: TOFACITINIB CITRATE
     Indication: Product used for unknown indication
     Route: 065
  8. ACETAMINOPHEN [Concomitant]
     Active Substance: ACETAMINOPHEN
     Indication: Premedication
     Dosage: 1000.0 MILLIGRAM
     Route: 048
  9. ACETAMINOPHEN\OXYCODONE HYDROCHLORIDE [Concomitant]
     Active Substance: ACETAMINOPHEN\OXYCODONE HYDROCHLORIDE
     Dosage: UNK
     Route: 065
  10. ACETAMINOPHEN\OXYCODONE HYDROCHLORIDE [Concomitant]
     Active Substance: ACETAMINOPHEN\OXYCODONE HYDROCHLORIDE
     Dosage: UNK
  11. ACETAMINOPHEN\OXYCODONE HYDROCHLORIDE [Concomitant]
     Active Substance: ACETAMINOPHEN\OXYCODONE HYDROCHLORIDE
     Dosage: UNK
     Route: 065
  12. DIPHENHYDRAMINE HYDROCHLORIDE [Concomitant]
     Active Substance: DIPHENHYDRAMINE HYDROCHLORIDE
     Indication: Premedication
     Dosage: 50.0 MILLIGRAM
     Route: 048
  13. FOLIC ACID [Concomitant]
     Active Substance: FOLIC ACID
  14. HYDROXYCHLOROQUINE SULFATE [Concomitant]
     Active Substance: HYDROXYCHLOROQUINE SULFATE
     Dosage: 200 MG
     Route: 048
  15. HYDROXYCHLOROQUINE SULFATE [Concomitant]
     Active Substance: HYDROXYCHLOROQUINE SULFATE
     Dosage: 200 MILLIGRAM
     Route: 048
  16. METHOTREXATE [Concomitant]
     Active Substance: METHOTREXATE
     Dosage: UNK, 1 EVERY 1 WEEKS
     Route: 058
  17. METHYLPREDNISOLONE [Concomitant]
     Active Substance: METHYLPREDNISOLONE
     Indication: Premedication
     Dosage: 100.0 MILLIGRAM
     Route: 042
  18. SODIUM CHLORIDE [Concomitant]
     Active Substance: SODIUM CHLORIDE
     Dosage: UNK
     Route: 042
  19. OXAZEPAM [Concomitant]
     Active Substance: OXAZEPAM
     Dosage: 10.0 MILLIGRAM
     Route: 048
  20. OXAZEPAM [Concomitant]
     Active Substance: OXAZEPAM
     Dosage: 10 MG
     Route: 048
  21. OXYCODONE [Concomitant]
     Active Substance: OXYCODONE
     Dosage: 40 MG
  22. OXYCODONE [Concomitant]
     Active Substance: OXYCODONE
     Dosage: 40.0 MILLIGRAM
     Route: 065
  23. OXYCODONE [Concomitant]
     Active Substance: OXYCODONE
     Dosage: 40 MILLIGRAM
     Route: 065
  24. PREDNISONE [Concomitant]
     Active Substance: PREDNISONE
  25. SULFASALAZINE [Concomitant]
     Active Substance: SULFASALAZINE
     Dosage: 500.0 MILLIGRAM
     Route: 048

REACTIONS (42)
  - Agitation [Not Recovered/Not Resolved]
  - Blood pressure diastolic increased [Not Recovered/Not Resolved]
  - Blood pressure systolic increased [Not Recovered/Not Resolved]
  - Body temperature decreased [Not Recovered/Not Resolved]
  - Bone disorder [Not Recovered/Not Resolved]
  - C-reactive protein increased [Not Recovered/Not Resolved]
  - Fall [Not Recovered/Not Resolved]
  - Foot fracture [Not Recovered/Not Resolved]
  - Heart rate decreased [Not Recovered/Not Resolved]
  - Ill-defined disorder [Not Recovered/Not Resolved]
  - Impaired healing [Not Recovered/Not Resolved]
  - Joint swelling [Not Recovered/Not Resolved]
  - Ligament sprain [Not Recovered/Not Resolved]
  - Poor quality sleep [Not Recovered/Not Resolved]
  - Procedural haemorrhage [Not Recovered/Not Resolved]
  - Rheumatoid arthritis [Not Recovered/Not Resolved]
  - Swelling [Not Recovered/Not Resolved]
  - Upper limb fracture [Not Recovered/Not Resolved]
  - Vascular rupture [Not Recovered/Not Resolved]
  - Weight abnormal [Not Recovered/Not Resolved]
  - Weight decreased [Not Recovered/Not Resolved]
  - Weight increased [Not Recovered/Not Resolved]
  - Wound [Not Recovered/Not Resolved]
  - Oxygen saturation decreased [Not Recovered/Not Resolved]
  - Alopecia [Not Recovered/Not Resolved]
  - Anaphylactic reaction [Not Recovered/Not Resolved]
  - Anxiety [Not Recovered/Not Resolved]
  - Blood pressure increased [Not Recovered/Not Resolved]
  - Heart rate increased [Not Recovered/Not Resolved]
  - Arthralgia [Not Recovered/Not Resolved]
  - Cellulitis [Not Recovered/Not Resolved]
  - Drug hypersensitivity [Not Recovered/Not Resolved]
  - Headache [Not Recovered/Not Resolved]
  - Hypotension [Not Recovered/Not Resolved]
  - Infection [Not Recovered/Not Resolved]
  - Inflammation [Not Recovered/Not Resolved]
  - Localised infection [Not Recovered/Not Resolved]
  - Nausea [Not Recovered/Not Resolved]
  - Pain [Not Recovered/Not Resolved]
  - Vomiting [Not Recovered/Not Resolved]
  - Wound infection [Not Recovered/Not Resolved]
  - Drug ineffective [Not Recovered/Not Resolved]
